FAERS Safety Report 6161754-X (Version None)
Quarter: 2009Q2

REPORT INFORMATION
  Report Type: 
  Country: None (occurrence: None)
  Receive Date: 20090421
  Receipt Date: 20090408
  Transmission Date: 20091009
  Serious: Yes (Hospitalization, Other)
  Sender: FDA-Public Use
  Company Number: GB-ABBOTT-07P-167-0368950-00

PATIENT
  Sex: Male

DRUGS (1)
  1. PROSTAP SR [Suspect]
     Indication: PROSTATE CANCER

REACTIONS (1)
  - INJECTION SITE NODULE [None]
